FAERS Safety Report 8211588-7 (Version None)
Quarter: 2012Q1

REPORT INFORMATION
  Report Type: 
  Country: None (occurrence: None)
  Receive Date: 20120315
  Receipt Date: 20120306
  Transmission Date: 20120608
  Serious: Yes (Hospitalization)
  Sender: FDA-Public Use
  Company Number: US-JNJFOC-20120304728

PATIENT
  Sex: Female
  Weight: 72.58 kg

DRUGS (8)
  1. FENTANYL-100 [Suspect]
     Indication: BACK PAIN
     Dosage: 300MCG/PATCH/100MCG/EVER 48 HOURS
     Route: 062
     Dates: start: 20110301
  2. LEVOTHYROXINE SODIUM [Concomitant]
     Indication: THYROID DISORDER
     Route: 048
  3. SOMA [Concomitant]
     Indication: PAIN
     Route: 048
  4. NOR-QD [Concomitant]
     Indication: CONTRACEPTION
     Route: 048
  5. DURAGESIC-100 [Suspect]
     Indication: BACK PAIN
     Route: 062
     Dates: start: 19990101, end: 20110101
  6. AMBIEN [Concomitant]
     Indication: SLEEP DISORDER
     Route: 065
  7. OXYCODONE HCL [Concomitant]
     Indication: PAIN
     Dosage: 1-2 TABLET A DAY
     Route: 048
  8. NEURONTIN [Concomitant]
     Indication: PAIN
     Route: 048

REACTIONS (9)
  - FEELING ABNORMAL [None]
  - DERMATITIS CONTACT [None]
  - DEEP VEIN THROMBOSIS [None]
  - HYPERSENSITIVITY [None]
  - HOSPITALISATION [None]
  - STRESS [None]
  - PAIN [None]
  - ANXIETY [None]
  - DRUG EFFECT DECREASED [None]
